FAERS Safety Report 19097831 (Version 1)
Quarter: 2021Q2

REPORT INFORMATION
  Report Type: Spontaneous
  Country: US (occurrence: US)
  Receive Date: 20210406
  Receipt Date: 20210406
  Transmission Date: 20210717
  Serious: Yes (Hospitalization)
  Sender: FDA-Public Use
  Company Number: None

PATIENT
  Age: 45 Year
  Sex: Female
  Weight: 67.5 kg

DRUGS (1)
  1. INJECTAFER [Suspect]
     Active Substance: FERRIC CARBOXYMALTOSE
     Indication: IRON DEFICIENCY ANAEMIA
     Route: 042
     Dates: start: 20200309, end: 20200316

REACTIONS (6)
  - Dyspnoea [None]
  - Sinus tachycardia [None]
  - Flushing [None]
  - Lung disorder [None]
  - Infusion related reaction [None]
  - Bronchitis [None]

NARRATIVE: CASE EVENT DATE: 20200412
